FAERS Safety Report 9837412 (Version 1)
Quarter: 2014Q1

REPORT INFORMATION
  Report Type: Spontaneous
  Country: US (occurrence: US)
  Receive Date: 20140123
  Receipt Date: 20140123
  Transmission Date: 20141002
  Serious: No
  Sender: FDA-Public Use
  Company Number: US-PFIZER INC-2014021181

PATIENT
  Age: 90 Year
  Sex: Female
  Weight: 82.5 kg

DRUGS (3)
  1. CELEBREX [Suspect]
     Indication: ARTHRITIS
     Dosage: 100 MG, 2X/DAY
     Dates: start: 201401, end: 20140118
  2. LEVOTHYROXINE [Concomitant]
     Indication: THYROID DISORDER
     Dosage: 50 UG, 1X/DAY (IN MORNING)
  3. ATORVASTATIN [Concomitant]
     Dosage: 20 MG, DAILY

REACTIONS (1)
  - Rash [Recovering/Resolving]
